FAERS Safety Report 20554904 (Version 1)
Quarter: 2022Q1

REPORT INFORMATION
  Report Type: Spontaneous
  Country: US (occurrence: US)
  Receive Date: 20220304
  Receipt Date: 20220304
  Transmission Date: 20220423
  Serious: No
  Sender: FDA-Public Use
  Company Number: US-BAYER-2022A024878

PATIENT
  Age: 58 Year
  Sex: Male

DRUGS (4)
  1. VITRAKVI [Suspect]
     Active Substance: LAROTRECTINIB
     Indication: Papillary thyroid cancer
     Dosage: 50 MG, BID
     Route: 048
     Dates: start: 20201020
  2. VITRAKVI [Suspect]
     Active Substance: LAROTRECTINIB
     Indication: Papillary thyroid cancer
     Dosage: UNK
     Route: 048
  3. CALCIUM\VITAMIN D [Concomitant]
     Active Substance: CALCIUM\VITAMIN D
     Dosage: UNK
  4. SYNTHROID [Concomitant]
     Active Substance: LEVOTHYROXINE SODIUM
     Dosage: UNK

REACTIONS (3)
  - Withdrawal syndrome [Recovered/Resolved]
  - Influenza like illness [Recovered/Resolved]
  - Off label use [None]
